FAERS Safety Report 18947824 (Version 1)
Quarter: 2021Q1

REPORT INFORMATION
  Report Type: Spontaneous
  Country: US (occurrence: US)
  Receive Date: 20210226
  Receipt Date: 20210226
  Transmission Date: 20210420
  Serious: Yes (Other)
  Sender: FDA-Public Use
  Company Number: US-GLAXOSMITHKLINE-US2021GSK037288

PATIENT
  Sex: Female

DRUGS (4)
  1. RANITIDINE. [Suspect]
     Active Substance: RANITIDINE
     Indication: GASTRIC ULCER
     Dosage: 50 MG|PRESCRIPTION
     Route: 065
     Dates: start: 200601, end: 201201
  2. ZANTAC [Suspect]
     Active Substance: RANITIDINE HYDROCHLORIDE
     Indication: GASTRIC ULCER
     Dosage: 150 MG, 3?4 TIMES A WEEK
     Route: 065
     Dates: start: 198301, end: 201201
  3. RANITIDINE. [Suspect]
     Active Substance: RANITIDINE
     Indication: GASTRIC ULCER
     Dosage: 50 MG, QD
     Route: 065
     Dates: start: 200601, end: 201201
  4. ZANTAC [Suspect]
     Active Substance: RANITIDINE HYDROCHLORIDE
     Indication: GASTRIC ULCER
     Dosage: 150 MG, 3?4 TIMES A WEEK
     Route: 065
     Dates: start: 198301, end: 201201

REACTIONS (2)
  - Colorectal cancer [Unknown]
  - Brain neoplasm malignant [Unknown]
